FAERS Safety Report 22520499 (Version 1)
Quarter: 2023Q2

REPORT INFORMATION
  Report Type: Other
  Country: None (occurrence: PT)
  Receive Date: 20230605
  Receipt Date: 20230605
  Transmission Date: 20230721
  Serious: Yes (Life-Threatening)
  Sender: FDA-Public Use
  Company Number: PT-B.Braun Medical Inc.-2142329

PATIENT
  Age: 39 Year
  Sex: Male

DRUGS (4)
  1. LIDOCAINE HYDROCHLORIDE AND DEXTROSE [Suspect]
     Active Substance: LIDOCAINE HYDROCHLORIDE
     Indication: Arrhythmia prophylaxis
  2. RIVAROXABAN [Concomitant]
     Active Substance: RIVAROXABAN
  3. AMIODARONE [Suspect]
     Active Substance: AMIODARONE
  4. ESMOLOL [Suspect]
     Active Substance: ESMOLOL HYDROCHLORIDE

REACTIONS (1)
  - Drug ineffective [Unknown]
